FAERS Safety Report 10271506 (Version 1)
Quarter: 2014Q3

REPORT INFORMATION
  Report Type: Spontaneous
  Country: DK (occurrence: DK)
  Receive Date: 20140701
  Receipt Date: 20140701
  Transmission Date: 20150326
  Serious: Yes (Life-Threatening, Hospitalization)
  Sender: FDA-Public Use
  Company Number: DK-ACTAVIS-2014-14012

PATIENT
  Age: 64 Year
  Sex: Male

DRUGS (4)
  1. CORODIL COMP [Concomitant]
     Indication: HYPERTENSION
     Dosage: UNK
     Route: 065
  2. CLOPIDOGREL [Suspect]
     Active Substance: CLOPIDOGREL BISULFATE
     Indication: THROMBOSIS PROPHYLAXIS
     Dosage: 75 MG, DAILY
     Route: 048
     Dates: start: 20131206, end: 20140319
  3. LYRICA [Concomitant]
     Active Substance: PREGABALIN
     Indication: PAIN
     Dosage: UNK
     Route: 065
  4. ELTROXIN [Concomitant]
     Active Substance: LEVOTHYROXINE
     Indication: ADVERSE DRUG REACTION
     Dosage: UNK
     Route: 065

REACTIONS (8)
  - Vomiting [Unknown]
  - Depressed level of consciousness [Unknown]
  - Visual impairment [Unknown]
  - Headache [Unknown]
  - Cerebral haemorrhage [Not Recovered/Not Resolved]
  - Dizziness [Unknown]
  - Hydrocephalus [Unknown]
  - Nausea [Unknown]

NARRATIVE: CASE EVENT DATE: 20140319
